FAERS Safety Report 10087197 (Version 3)
Quarter: 2014Q2

REPORT INFORMATION
  Report Type: Report from Study
  Country: CA (occurrence: CA)
  Receive Date: 20140418
  Receipt Date: 20140502
  Transmission Date: 20141212
  Serious: Yes (Hospitalization, Disabling)
  Sender: FDA-Public Use
  Company Number: CA-ABBVIE-13P-028-1184976-00

PATIENT
  Sex: Female
  Weight: 113.5 kg

DRUGS (2)
  1. HUMIRA [Suspect]
     Indication: PSORIASIS
     Route: 058
     Dates: start: 20130723
  2. HUMIRA [Suspect]
     Route: 058
     Dates: start: 20131107, end: 2014

REACTIONS (8)
  - Wound infection [Not Recovered/Not Resolved]
  - Nasopharyngitis [Recovered/Resolved]
  - Psoriasis [Not Recovered/Not Resolved]
  - Influenza [Recovered/Resolved]
  - Psoriasis [Unknown]
  - Dry skin [Not Recovered/Not Resolved]
  - Blister [Unknown]
  - Loss of employment [Unknown]
